FAERS Safety Report 8728217 (Version 2)
Quarter: 2012Q4

REPORT INFORMATION
  Report Type: 
  Country: US (occurrence: US)
  Receive Date: 20120817
  Receipt Date: 20120921
  Transmission Date: 20130627
  Serious: No
  Sender: FDA-Public Use
  Company Number: US-PFIZER INC-2012197661

PATIENT
  Age: 78 Year
  Sex: Female
  Weight: 86.17 kg

DRUGS (3)
  1. GABAPENTIN [Suspect]
     Indication: FIBROMYALGIA
     Dosage: UNK
     Route: 048
  2. LIPITOR [Concomitant]
     Indication: HYPERTENSION
     Dosage: 10 mg, daily
  3. METOPROLOL [Concomitant]
     Indication: BLOOD CHOLESTEROL INCREASED
     Dosage: 50 mg, daily

REACTIONS (6)
  - Headache [Recovered/Resolved]
  - Nausea [Recovered/Resolved]
  - Malaise [Recovered/Resolved]
  - Tremor [Recovered/Resolved]
  - Pain [Recovered/Resolved]
  - Abdominal discomfort [Recovered/Resolved]
